FAERS Safety Report 8229046-2 (Version None)
Quarter: 2012Q1

REPORT INFORMATION
  Report Type: 
  Country: None (occurrence: None)
  Receive Date: 20120322
  Receipt Date: 20120316
  Transmission Date: 20120608
  Serious: No
  Sender: FDA-Public Use
  Company Number: US-BAYER-2012-026642

PATIENT
  Age: 40 Year
  Sex: Female

DRUGS (2)
  1. MIRENA [Suspect]
     Indication: CONTRACEPTION
     Dosage: 20 MCG/24HR, CONT
     Route: 015
     Dates: start: 20120312, end: 20120312
  2. MIRENA [Suspect]
     Indication: MENORRHAGIA

REACTIONS (2)
  - DEVICE DIFFICULT TO USE [None]
  - UNEVALUABLE EVENT [None]
